FAERS Safety Report 5517766-X (Version None)
Quarter: 2007Q4

REPORT INFORMATION
  Report Type: 
  Country: None (occurrence: None)
  Receive Date: 20071114
  Receipt Date: 20071105
  Transmission Date: 20080405
  Serious: Yes (Hospitalization)
  Sender: FDA-Public Use
  Company Number: JP-MERCK-0711USA01909

PATIENT

DRUGS (2)
  1. ZETIA [Suspect]
     Route: 048
     Dates: start: 20071030, end: 20071101
  2. [THERAPY UNSPECIFIED] [Concomitant]
     Route: 065

REACTIONS (1)
  - STEVENS-JOHNSON SYNDROME [None]
